FAERS Safety Report 7842629-4 (Version None)
Quarter: 2011Q4

REPORT INFORMATION
  Report Type: 
  Country: None (occurrence: None)
  Receive Date: 20111025
  Receipt Date: 20111024
  Transmission Date: 20120403
  Serious: Yes (Hospitalization, Other)
  Sender: FDA-Public Use
  Company Number: US-PFIZER INC-2011199209

PATIENT
  Sex: Female

DRUGS (1)
  1. CHANTIX [Suspect]
     Indication: SMOKING CESSATION THERAPY
     Dosage: 0.5/1 MG
     Dates: start: 20070701, end: 20070801

REACTIONS (7)
  - DEPRESSION [None]
  - INTENTIONAL OVERDOSE [None]
  - ANXIETY [None]
  - AGITATION [None]
  - SUICIDE ATTEMPT [None]
  - ANGER [None]
  - INSOMNIA [None]
